FAERS Safety Report 15465193 (Version 1)
Quarter: 2018Q4

REPORT INFORMATION
  Report Type: Spontaneous
  Country: SG (occurrence: SG)
  Receive Date: 20181004
  Receipt Date: 20181004
  Transmission Date: 20190204
  Serious: No
  Sender: FDA-Public Use
  Company Number: SG-JAZZ-2018-SG-012963

PATIENT
  Age: 9 Year
  Sex: Male

DRUGS (1)
  1. ASPARAGINASE [Suspect]
     Active Substance: ASPARAGINASE
     Indication: PRODUCT USED FOR UNKNOWN INDICATION
     Dosage: UNKNOWN DOSE
     Route: 030

REACTIONS (2)
  - Skin swelling [Unknown]
  - Rash [Unknown]

NARRATIVE: CASE EVENT DATE: 20180510
